FAERS Safety Report 12329132 (Version 1)
Quarter: 2016Q2

REPORT INFORMATION
  Report Type: Spontaneous
  Country: DE (occurrence: DE)
  Receive Date: 20160503
  Receipt Date: 20160503
  Transmission Date: 20160815
  Serious: Yes (Hospitalization, Other)
  Sender: FDA-Public Use
  Company Number: DE-ROCHE-1595604

PATIENT
  Age: 53 Year
  Sex: Female
  Weight: 60 kg

DRUGS (3)
  1. PALONOSETRON [Concomitant]
     Active Substance: PALONOSETRON
     Route: 042
     Dates: start: 20131223
  2. KADCYLA [Suspect]
     Active Substance: ADO-TRASTUZUMAB EMTANSINE
     Indication: BREAST CANCER
     Dosage: DOSE; 103MG
     Route: 042
     Dates: start: 20131223
  3. DEXAMETHASON [Concomitant]
     Active Substance: DEXAMETHASONE
     Route: 042
     Dates: start: 20131223

REACTIONS (28)
  - Fatigue [Unknown]
  - Pruritus [Unknown]
  - Palmar-plantar erythrodysaesthesia syndrome [Unknown]
  - Haemorrhage [Recovered/Resolved]
  - Rash [Unknown]
  - Dysgeusia [Unknown]
  - Vomiting [Unknown]
  - Constipation [Unknown]
  - Influenza like illness [Unknown]
  - Sleep disorder [Unknown]
  - Arthralgia [Unknown]
  - Eye infection [Unknown]
  - Gastrointestinal disorder [Unknown]
  - Memory impairment [Unknown]
  - Alopecia [Unknown]
  - Nail disorder [Unknown]
  - Coagulopathy [Not Recovered/Not Resolved]
  - Red blood cell count decreased [Unknown]
  - Asthenia [Unknown]
  - Myalgia [Unknown]
  - Epistaxis [Recovered/Resolved]
  - Thrombocytopenia [Not Recovered/Not Resolved]
  - Binge drinking [Recovered/Resolved]
  - Dry mouth [Unknown]
  - Hepatocellular injury [Unknown]
  - Gingival bleeding [Unknown]
  - Dizziness [Unknown]
  - Vision blurred [Unknown]

NARRATIVE: CASE EVENT DATE: 20150413
